FAERS Safety Report 17076526 (Version 2)
Quarter: 2019Q4

REPORT INFORMATION
  Report Type: Report from Study
  Country: US (occurrence: US)
  Receive Date: 20191126
  Receipt Date: 20191227
  Transmission Date: 20200122
  Serious: No
  Sender: FDA-Public Use
  Company Number: US-SA-2019SA322196

PATIENT
  Age: 59 Year
  Sex: Female
  Weight: 140 kg

DRUGS (2)
  1. TERIFLUNOMIDE. [Suspect]
     Active Substance: TERIFLUNOMIDE
     Indication: MULTIPLE SCLEROSIS
     Dosage: 14 MG, QD
     Route: 048
     Dates: start: 20190926
  2. TERIFLUNOMIDE. [Suspect]
     Active Substance: TERIFLUNOMIDE
     Dosage: 14 MG, QD
     Route: 048
     Dates: start: 20191125

REACTIONS (6)
  - Urinary incontinence [Recovered/Resolved]
  - Alopecia [Unknown]
  - Vaginal odour [Not Recovered/Not Resolved]
  - Gait inability [Recovered/Resolved]
  - Feeling hot [Unknown]
  - Feeling cold [Unknown]

NARRATIVE: CASE EVENT DATE: 20191007
